FAERS Safety Report 9458470 (Version 1)
Quarter: 2013Q3

REPORT INFORMATION
  Report Type: Spontaneous
  Country: US (occurrence: None)
  Receive Date: 20130813
  Receipt Date: 20130813
  Transmission Date: 20140520
  Serious: Yes (Life-Threatening, Hospitalization)
  Sender: FDA-Public Use
  Company Number: None

PATIENT
  Age: 55 Year
  Sex: Male
  Weight: 106.6 kg

DRUGS (10)
  1. TIKOSYN [Suspect]
     Indication: ATRIAL FIBRILLATION
     Route: 048
     Dates: start: 20130529, end: 20130613
  2. DOFETILIDE [Concomitant]
  3. VITAMIN E [Concomitant]
  4. CARVEDILOL [Concomitant]
  5. ASPIRIN [Concomitant]
  6. ACETAMINOPHEN [Concomitant]
  7. AIRBORNE [Concomitant]
  8. PANTOPRAZOLE SODIUM [Concomitant]
  9. NAPROXEN SODIIUM [Concomitant]
  10. ALBUTEROL SULF [Concomitant]

REACTIONS (4)
  - Chest pain [None]
  - Palpitations [None]
  - Dyspnoea [None]
  - Tachycardia [None]
